FAERS Safety Report 9248882 (Version 1)
Quarter: 2013Q2

REPORT INFORMATION
  Report Type: Spontaneous
  Country: US (occurrence: None)
  Receive Date: 20130419
  Receipt Date: 20130419
  Transmission Date: 20140414
  Serious: Yes (Hospitalization)
  Sender: FDA-Public Use
  Company Number: None

PATIENT
  Age: 87 Year
  Sex: Male
  Weight: 81.5 kg

DRUGS (2)
  1. ZOLPIDEM [Suspect]
     Indication: INSOMNIA
     Route: 048
     Dates: start: 20110809, end: 20130324
  2. DOXYLAMINE [Suspect]
     Indication: COUGH
     Route: 048
     Dates: start: 20130323, end: 20130324

REACTIONS (8)
  - Confusional state [None]
  - Mental status changes [None]
  - Disorientation [None]
  - Incorrect dose administered [None]
  - Anxiety [None]
  - Hypersomnia [None]
  - Disturbance in attention [None]
  - Dysarthria [None]
